FAERS Safety Report 7442737-6 (Version None)
Quarter: 2011Q2

REPORT INFORMATION
  Report Type: 
  Country: None (occurrence: None)
  Receive Date: 20110428
  Receipt Date: 20110419
  Transmission Date: 20111010
  Serious: Yes (Other)
  Sender: FDA-Public Use
  Company Number: US-ASTRAZENECA-2010SE16209

PATIENT
  Age: 55 Year
  Sex: Male

DRUGS (4)
  1. CRESTOR [Suspect]
     Indication: HYPERCHOLESTEROLAEMIA
     Route: 048
     Dates: start: 20050101
  2. ASPIRIN [Concomitant]
  3. MASPAN [Concomitant]
  4. ATENOLOL [Concomitant]

REACTIONS (2)
  - GAIT DISTURBANCE [None]
  - COLORECTAL CANCER [None]
